FAERS Safety Report 9729801 (Version 2)
Quarter: 2013Q4

REPORT INFORMATION
  Report Type: Spontaneous
  Country: US (occurrence: US)
  Receive Date: 20131204
  Receipt Date: 20131204
  Transmission Date: 20140711
  Serious: No
  Sender: FDA-Public Use
  Company Number: US-GILEAD-2009-0021897

PATIENT
  Sex: Male
  Weight: 74.84 kg

DRUGS (14)
  1. LETAIRIS [Suspect]
     Indication: PULMONARY ARTERIAL HYPERTENSION
     Route: 048
     Dates: start: 20081117
  2. REVATIO [Concomitant]
     Indication: PULMONARY ARTERIAL HYPERTENSION
     Dates: start: 20080530
  3. DOXAZOSIN MESYLATE [Concomitant]
  4. PLAVIX [Concomitant]
  5. HCTZ [Concomitant]
  6. ASPIRIN [Concomitant]
  7. CRESTOR [Concomitant]
  8. LUMIGAN [Concomitant]
  9. PREDNISONE [Concomitant]
  10. ACETYLCYSTEINE 20% [Concomitant]
  11. GLYBURIDE [Concomitant]
  12. ONE A DAY [Concomitant]
  13. CITRACAL [Concomitant]
  14. VITAMIN C [Concomitant]

REACTIONS (2)
  - Haematochezia [Unknown]
  - Anaemia [Unknown]
